FAERS Safety Report 4456247-1 (Version None)
Quarter: 2004Q3

REPORT INFORMATION
  Report Type: 
  Country: None (occurrence: None)
  Receive Date: 20040920
  Receipt Date: 20040903
  Transmission Date: 20050211
  Serious: Yes (Hospitalization)
  Sender: FDA-Public Use
  Company Number: 2004AP02962

PATIENT
  Age: 77 Year
  Sex: Male

DRUGS (12)
  1. IRESSA [Suspect]
     Indication: LUNG ADENOCARCINOMA
     Dosage: 250 MG DAILY PO
     Route: 048
     Dates: start: 20031217, end: 20040521
  2. IRESSA [Suspect]
     Indication: NON-SMALL CELL LUNG CANCER
     Dosage: 250 MG DAILY PO
     Route: 048
     Dates: start: 20031217, end: 20040521
  3. IRESSA [Suspect]
     Indication: LUNG ADENOCARCINOMA
     Dosage: 250 MG DAILY PO
     Route: 048
     Dates: start: 20040608
  4. IRESSA [Suspect]
     Indication: NON-SMALL CELL LUNG CANCER
     Dosage: 250 MG DAILY PO
     Route: 048
     Dates: start: 20040608
  5. MUCOSTA [Concomitant]
  6. HYPEN [Concomitant]
  7. GASMOTIN [Concomitant]
  8. PURSENNID [Concomitant]
  9. KLARICID [Concomitant]
  10. MUCOSALVAN [Concomitant]
  11. LENDORMIN [Concomitant]
  12. CRAVIT [Concomitant]

REACTIONS (3)
  - MALAISE [None]
  - PLEURAL EFFUSION [None]
  - PYREXIA [None]
